FAERS Safety Report 21007100 (Version 2)
Quarter: 2022Q4

REPORT INFORMATION
  Report Type: Spontaneous
  Country: BR (occurrence: BR)
  Receive Date: 20220625
  Receipt Date: 20221019
  Transmission Date: 20230112
  Serious: Yes (Other)
  Sender: FDA-Public Use
  Company Number: BR-NOVARTISPH-NVSC2022BR143488

PATIENT

DRUGS (1)
  1. COSENTYX [Suspect]
     Active Substance: SECUKINUMAB
     Indication: Product used for unknown indication
     Dosage: UNK (IN USE OF COSENTYX FOR ABOUT 2 YEARS)
     Route: 065

REACTIONS (2)
  - Schistosomiasis [Unknown]
  - Visceral leishmaniasis [Unknown]
